FAERS Safety Report 22835729 (Version 3)
Quarter: 2024Q2

REPORT INFORMATION
  Report Type: Spontaneous
  Country: IT (occurrence: None)
  Receive Date: 20230818
  Receipt Date: 20240612
  Transmission Date: 20240716
  Serious: Yes (Hospitalization)
  Sender: FDA-Public Use
  Company Number: IT-ROCHE-3401957

PATIENT
  Age: 0 Year
  Sex: Female
  Weight: 1.32 kg

DRUGS (1)
  1. OCREVUS [Suspect]
     Active Substance: OCRELIZUMAB
     Indication: Product used for unknown indication
     Route: 064
     Dates: start: 20220225, end: 20220907

REACTIONS (2)
  - Foetal exposure during pregnancy [Unknown]
  - Necrotising colitis [Unknown]

NARRATIVE: CASE EVENT DATE: 20230501
